FAERS Safety Report 25284503 (Version 1)
Quarter: 2025Q2

REPORT INFORMATION
  Report Type: Spontaneous
  Country: US (occurrence: US)
  Receive Date: 20250508
  Receipt Date: 20250508
  Transmission Date: 20250717
  Serious: Yes (Hospitalization, Other)
  Sender: BRISTOL-MYERS SQUIBB COMPANY
  Company Number: US-BRISTOL-MYERS SQUIBB COMPANY-2025-062655

PATIENT
  Age: 81 Year
  Sex: Female

DRUGS (2)
  1. LENALIDOMIDE [Suspect]
     Active Substance: LENALIDOMIDE
     Indication: Plasma cell myeloma
     Dosage: TAKE 1 CAPSULE BY MOUTH DAILY FOR THE FIRST 21 DAYS OF EACH 28 DAY CYCLE
     Route: 048
  2. ASPIRIN [Suspect]
     Active Substance: ASPIRIN
     Indication: Product used for unknown indication

REACTIONS (5)
  - Neuropathy peripheral [Recovering/Resolving]
  - Insomnia [Recovering/Resolving]
  - Rectal haemorrhage [Recovering/Resolving]
  - Vision blurred [Recovering/Resolving]
  - Somnolence [Recovering/Resolving]
